FAERS Safety Report 8505425-0 (Version None)
Quarter: 2012Q2

REPORT INFORMATION
  Report Type: 
  Country: None (occurrence: None)
  Receive Date: 20120405
  Receipt Date: 20091008
  Transmission Date: 20120825
  Serious: Yes (Hospitalization)
  Sender: FDA-Public Use
  Company Number: PHEH2009US13420

PATIENT
  Age: 51 Year
  Sex: Female
  Weight: 52.2 kg

DRUGS (9)
  1. PERCOCET [Concomitant]
  2. COLACE (DOCUSATE SODIUM) [Concomitant]
  3. TENORETIC 100 [Concomitant]
  4. XANAX [Concomitant]
  5. RECLAST [Suspect]
     Indication: OSTEOPOROSIS
     Dosage: 5MG YEARLY, INTRAVENOUS
     Route: 042
     Dates: start: 20091005, end: 20091005
  6. VITAMIN D [Concomitant]
  7. ELAVIL [Concomitant]
  8. PROTONIX [Concomitant]
  9. FOLIC ACID [Concomitant]

REACTIONS (2)
  - PYREXIA [None]
  - PAIN [None]
